FAERS Safety Report 20084032 (Version 1)
Quarter: 2021Q4

REPORT INFORMATION
  Report Type: Spontaneous
  Country: DE (occurrence: DE)
  Receive Date: 20211118
  Receipt Date: 20211118
  Transmission Date: 20220303
  Serious: Yes (Hospitalization, Other)
  Sender: FDA-Public Use
  Company Number: DE-NOVARTISPH-NVSC2021DE261264

PATIENT
  Sex: Male
  Weight: 85.5 kg

DRUGS (1)
  1. COSENTYX [Suspect]
     Active Substance: SECUKINUMAB
     Indication: Psoriatic arthropathy
     Dosage: 150 MG, QMO(EVERY 4 WEEKS)
     Route: 065
     Dates: start: 201911, end: 2021

REACTIONS (14)
  - Pulmonary embolism [Recovered/Resolved]
  - Cough [Unknown]
  - Dyspnoea [Unknown]
  - Thrombin time shortened [Unknown]
  - Peripheral vein occlusion [Recovered/Resolved]
  - Pain in extremity [Unknown]
  - Glucose tolerance impaired [Unknown]
  - Back pain [Unknown]
  - General physical health deterioration [Recovering/Resolving]
  - Hepatic steatosis [Unknown]
  - Cyst [Unknown]
  - C-reactive protein increased [Unknown]
  - Blood albumin decreased [Unknown]
  - Globulins increased [Unknown]

NARRATIVE: CASE EVENT DATE: 20210906
